FAERS Safety Report 10146307 (Version 3)
Quarter: 2014Q2

REPORT INFORMATION
  Report Type: Report from Study
  Country: US (occurrence: US)
  Receive Date: 20140501
  Receipt Date: 20140604
  Transmission Date: 20141212
  Serious: Yes (Death, Hospitalization, Other)
  Sender: FDA-Public Use
  Company Number: US-ALEXION PHARMACEUTICALS INC.-A201401538

PATIENT
  Sex: 0

DRUGS (8)
  1. SOLIRIS [Suspect]
     Indication: PAROXYSMAL NOCTURNAL HAEMOGLOBINURIA
     Dosage: 900 MG, QW
     Route: 042
     Dates: start: 20110802
  2. ASPIRIN [Concomitant]
     Indication: CARDIAC DISORDER
     Dosage: 81 MG, QD
     Route: 065
     Dates: start: 20100924
  3. COREG [Concomitant]
     Indication: HYPERTENSION
     Dosage: DAILY
     Route: 065
     Dates: start: 20100924
  4. PRAVASTATIN [Concomitant]
     Indication: HYPERLIPIDAEMIA
     Dosage: DAILY
     Route: 065
     Dates: start: 20100924
  5. TRAVATAN Z [Concomitant]
     Indication: EYE DISORDER
     Dosage: UNK GTT, UNK
     Route: 065
     Dates: start: 20100924
  6. DANAZOL [Concomitant]
     Indication: STEROID THERAPY
     Dosage: UNK UNK, BID
     Route: 065
     Dates: start: 20110705
  7. FOLIC ACID [Concomitant]
     Indication: PRODUCT USED FOR UNKNOWN INDICATION
     Dosage: DAILY
     Route: 065
     Dates: start: 20110705
  8. IRON [Concomitant]
     Indication: PRODUCT USED FOR UNKNOWN INDICATION
     Dosage: UNK, QD
     Route: 065
     Dates: start: 20110705

REACTIONS (8)
  - Death [Fatal]
  - Cardiac failure congestive [Not Recovered/Not Resolved]
  - Coronary artery bypass [Unknown]
  - Hernia repair [Unknown]
  - Post procedural haemorrhage [Unknown]
  - Pneumonia [Unknown]
  - Myelodysplastic syndrome [Unknown]
  - Haemoglobin decreased [Unknown]
